FAERS Safety Report 17763581 (Version 1)
Quarter: 2020Q2

REPORT INFORMATION
  Report Type: Spontaneous
  Country: PT (occurrence: PT)
  Receive Date: 20200509
  Receipt Date: 20200509
  Transmission Date: 20200714
  Serious: Yes (Hospitalization, Other)
  Sender: FDA-Public Use
  Company Number: PT-TEVA-2020-PT-1231750

PATIENT
  Age: 33 Year
  Sex: Male
  Weight: 73.5 kg

DRUGS (13)
  1. PARECOXIB [Suspect]
     Active Substance: PARECOXIB
     Indication: ANALGESIC THERAPY
     Dosage: 40MG
     Route: 065
  2. ONDANSETRON [Suspect]
     Active Substance: ONDANSETRON
     Indication: PROPHYLAXIS OF NAUSEA AND VOMITING
     Dosage: 4MG
     Route: 065
  3. PROPOFOL. [Suspect]
     Active Substance: PROPOFOL
     Dosage: 50MG
     Route: 040
  4. TRAMADOL. [Suspect]
     Active Substance: TRAMADOL
     Indication: ANALGESIC THERAPY
     Dosage: 100MG
     Route: 065
  5. SEVOFLURANE 2 % [Suspect]
     Active Substance: SEVOFLURANE
     Indication: ANAESTHESIA
     Route: 065
  6. PROPOFOL. [Suspect]
     Active Substance: PROPOFOL
     Route: 042
  7. PARACETAMOL [Suspect]
     Active Substance: ACETAMINOPHEN
     Indication: ANALGESIC THERAPY
     Dosage: 1000MG
     Route: 065
  8. DEXAMETHASONE. [Suspect]
     Active Substance: DEXAMETHASONE
     Indication: PROPHYLAXIS OF NAUSEA AND VOMITING
     Dosage: 5MG
     Route: 065
  9. ROCURONIUM [Suspect]
     Active Substance: ROCURONIUM BROMIDE
     Dosage: 50MG
     Route: 042
  10. FENTANYL. [Suspect]
     Active Substance: FENTANYL
     Dosage: 150MCG
     Route: 065
  11. SUGAMMADEX [Suspect]
     Active Substance: SUGAMMADEX
     Indication: NEUROMUSCULAR BLOCKADE
     Dosage: 200MG
     Route: 065
  12. ROPIVACAINE 0.75% [Suspect]
     Active Substance: ROPIVACAINE
     Dosage: 150MG
     Route: 065
  13. METAMIZOLE MAGNESIUM [Suspect]
     Active Substance: METAMIZOLE MAGNESIUM
     Indication: PAIN
     Dosage: 800MG
     Route: 065

REACTIONS (5)
  - Tachypnoea [Recovered/Resolved]
  - Respiratory failure [Recovered/Resolved]
  - Negative pressure pulmonary oedema [Recovered/Resolved]
  - Oxygen saturation decreased [Recovered/Resolved]
  - Intentional product use issue [Unknown]
